FAERS Safety Report 17202532 (Version 2)
Quarter: 2020Q1

REPORT INFORMATION
  Report Type: Spontaneous
  Country: US (occurrence: US)
  Receive Date: 20191226
  Receipt Date: 20200108
  Transmission Date: 20200409
  Serious: Yes (Other)
  Sender: FDA-Public Use
  Company Number: US-PFIZER INC-2019551185

PATIENT
  Age: 56 Year
  Sex: Female
  Weight: 89.81 kg

DRUGS (3)
  1. ESTRING [Suspect]
     Active Substance: ESTRADIOL
     Indication: POLLAKIURIA
  2. ESTRING [Suspect]
     Active Substance: ESTRADIOL
     Indication: ATROPHIC VULVOVAGINITIS
     Dosage: 2 MG, UNK (TO BE REMOVED AFTER 3 MONTHS)
     Route: 067
     Dates: start: 20191216, end: 20191216
  3. ESTRING [Suspect]
     Active Substance: ESTRADIOL
     Indication: DYSPAREUNIA
     Dosage: 1 DF, EVERY 3 MONTHS (1 RING Q 90 DAYS)
     Route: 067
     Dates: start: 20191216, end: 20191216

REACTIONS (5)
  - Anaphylactic reaction [Unknown]
  - Vulvovaginal pain [Recovered/Resolved]
  - Urticaria [Recovered/Resolved]
  - Vulvovaginal discomfort [Recovered/Resolved]
  - Vulvovaginal burning sensation [Recovered/Resolved]

NARRATIVE: CASE EVENT DATE: 20191216
